FAERS Safety Report 7183309-0 (Version None)
Quarter: 2010Q4

REPORT INFORMATION
  Report Type: 
  Country: None (occurrence: None)
  Receive Date: 20101222
  Receipt Date: 20100824
  Transmission Date: 20110411
  Serious: No
  Sender: FDA-Public Use
  Company Number: A0878756A

PATIENT
  Age: 48 Year
  Sex: Female

DRUGS (2)
  1. FLUTICASONE PROPIONATE [Suspect]
     Route: 045
     Dates: start: 20100701, end: 20100801
  2. NO CONCURRENT MEDICATION [Concomitant]

REACTIONS (3)
  - EXPIRED DRUG ADMINISTERED [None]
  - NASAL DISCOMFORT [None]
  - SENSITIVITY OF TEETH [None]
